FAERS Safety Report 5075916-6 (Version None)
Quarter: 2006Q3

REPORT INFORMATION
  Report Type: 
  Country: None (occurrence: None)
  Receive Date: 20060808
  Receipt Date: 20060808
  Transmission Date: 20061208
  Serious: No
  Sender: FDA-Public Use
  Company Number: None

PATIENT
  Sex: Male
  Weight: 79.7 kg

DRUGS (13)
  1. GLIADEL [Suspect]
     Indication: GLIOBLASTOMA MULTIFORME
     Dosage: 7.7 MG PER WAFER  ONCE  IV
     Route: 042
     Dates: start: 20060316
  2. O6-BENZYLGUANINE (O6BG) [Suspect]
     Indication: GLIOBLASTOMA MULTIFORME
     Dosage: 30 MG/M2 INFUSION   X 5 DAYS   IV
     Route: 042
     Dates: start: 20060316, end: 20060320
  3. DILANTIN [Concomitant]
  4. KEPPRA [Concomitant]
  5. ATIVAN [Concomitant]
  6. CELEXA [Concomitant]
  7. PEPCID [Concomitant]
  8. SENOKOT [Concomitant]
  9. COLACE [Concomitant]
  10. MULTIVITAMIN [Concomitant]
  11. POTASSIUM CHLORIDE [Concomitant]
  12. DECADRON [Concomitant]
  13. HYDROMORPHONE HCL [Concomitant]

REACTIONS (5)
  - FALL [None]
  - GLIOBLASTOMA MULTIFORME [None]
  - HEAD INJURY [None]
  - MALIGNANT NEOPLASM PROGRESSION [None]
  - MUSCULAR WEAKNESS [None]
